FAERS Safety Report 14927093 (Version 1)
Quarter: 2018Q2

REPORT INFORMATION
  Report Type: Spontaneous
  Country: US (occurrence: US)
  Receive Date: 20180523
  Receipt Date: 20180523
  Transmission Date: 20180711
  Serious: No
  Sender: FDA-Public Use
  Company Number: US-TORRENT-00006022

PATIENT
  Sex: Female
  Weight: 48 kg

DRUGS (1)
  1. MOXIFLOXACIN HYDROCHLORIDE TABLET [Suspect]
     Active Substance: MOXIFLOXACIN HYDROCHLORIDE
     Indication: NASOPHARYNGITIS
     Dosage: ONCE A DAY EACH FOR THREE DAYS OUT OF THE 10-DAY COURSE
     Route: 048
     Dates: start: 20171009, end: 20171012

REACTIONS (2)
  - Hallucination [Recovered/Resolved]
  - Rash [Recovered/Resolved]
